FAERS Safety Report 25741716 (Version 1)
Quarter: 2025Q3

REPORT INFORMATION
  Report Type: Spontaneous
  Country: US (occurrence: None)
  Receive Date: 20250829
  Receipt Date: 20250829
  Transmission Date: 20251020
  Serious: No
  Sender: FDA-CTU
  Company Number: None

PATIENT

DRUGS (1)
  1. CAPECITABINE [Suspect]
     Active Substance: CAPECITABINE

REACTIONS (7)
  - Abdominal discomfort [None]
  - Decreased appetite [None]
  - Diarrhoea [None]
  - Weight decreased [None]
  - Hypotension [None]
  - Asthenia [None]
  - Nasopharyngitis [None]
